FAERS Safety Report 7370052-8 (Version None)
Quarter: 2011Q1

REPORT INFORMATION
  Report Type: 
  Country: None (occurrence: None)
  Receive Date: 20110323
  Receipt Date: 20110311
  Transmission Date: 20110831
  Serious: Yes (Hospitalization, Other)
  Sender: FDA-Public Use
  Company Number: US-BAYER-2011-023538

PATIENT
  Sex: Female
  Weight: 85.714 kg

DRUGS (19)
  1. CELEBREX [Suspect]
     Indication: BACK PAIN
     Dosage: 200 MG, BID
     Dates: end: 20110201
  2. DETROL LA [Suspect]
     Dosage: UNK
  3. VITAMIN D [Concomitant]
  4. FLEXERIL [Concomitant]
  5. ASPIRIN [Suspect]
     Indication: ANTICOAGULANT THERAPY
     Dosage: 81 MG, QD
     Dates: start: 20010101, end: 20110228
  6. LYRICA [Suspect]
     Dosage: 25 MG, TID
     Route: 048
     Dates: start: 20080201, end: 20100501
  7. ZINC [Concomitant]
  8. PROTONIX [Concomitant]
     Indication: GASTRIC ULCER HAEMORRHAGE
  9. PROTONIX [Concomitant]
     Indication: DUODENAL ULCER HAEMORRHAGE
  10. CALCIUM WITH VITAMIN D [Concomitant]
  11. VITAMIN E [Concomitant]
  12. PROTONIX [Concomitant]
     Indication: DYSPEPSIA
  13. PROTONIX [Concomitant]
     Indication: SMALL INTESTINAL ULCER HAEMORRHAGE
  14. ATENOLOL [Concomitant]
     Indication: HYPERTENSION
     Dosage: UNK
  15. PROTONIX [Concomitant]
  16. MULTIVITAMIN [Concomitant]
  17. CELEBREX [Suspect]
     Indication: ARTHRITIS
     Dosage: 200 MG, QD
  18. ASCORBIC ACID [Concomitant]
  19. GLUCOSAMINE [Concomitant]
     Dosage: UNK

REACTIONS (10)
  - DUODENAL ULCER HAEMORRHAGE [None]
  - SMALL INTESTINAL ULCER HAEMORRHAGE [None]
  - WEIGHT DECREASED [None]
  - DIARRHOEA [None]
  - GASTRIC ULCER HAEMORRHAGE [None]
  - NAUSEA [None]
  - CHEST PAIN [None]
  - JAW DISORDER [None]
  - ROTATOR CUFF SYNDROME [None]
  - DYSPEPSIA [None]
